FAERS Safety Report 7210454-3 (Version None)
Quarter: 2011Q1

REPORT INFORMATION
  Report Type: 
  Country: None (occurrence: None)
  Receive Date: 20110103
  Receipt Date: 20110103
  Transmission Date: 20110831
  Serious: Yes (Disabling, Other)
  Sender: FDA-Public Use
  Company Number: None

PATIENT
  Age: 28 Year
  Sex: Male
  Weight: 102.0593 kg

DRUGS (2)
  1. OXYCONTIN [Suspect]
     Indication: INTRACRANIAL PRESSURE INCREASED
     Dosage: 480 MG EVERY 12 HOURS PO
     Route: 048
     Dates: start: 19960927, end: 20100825
  2. OXYCONTIN [Suspect]
     Indication: MIGRAINE
     Dosage: 480 MG EVERY 12 HOURS PO
     Route: 048
     Dates: start: 19960927, end: 20100825

REACTIONS (10)
  - PRODUCT FORMULATION ISSUE [None]
  - DRUG INEFFECTIVE [None]
  - PAIN [None]
  - PRODUCT SOLUBILITY ABNORMAL [None]
  - DEPRESSION [None]
  - MENTAL DISORDER [None]
  - DRUG WITHDRAWAL SYNDROME [None]
  - DRY MOUTH [None]
  - THIRST [None]
  - PRURITUS [None]
